FAERS Safety Report 18139898 (Version 1)
Quarter: 2020Q3

REPORT INFORMATION
  Report Type: Spontaneous
  Country: CN (occurrence: CN)
  Receive Date: 20200812
  Receipt Date: 20200812
  Transmission Date: 20201103
  Serious: Yes (Death, Hospitalization)
  Sender: FDA-Public Use
  Company Number: CN-TEVA-2020-CN-1812473

PATIENT
  Age: 51 Year
  Sex: Male

DRUGS (12)
  1. MOXIFLOXACIN. [Suspect]
     Active Substance: MOXIFLOXACIN
     Indication: BACTERIAL INFECTION
  2. MEROPENEM. [Suspect]
     Active Substance: MEROPENEM
     Indication: NOSOCOMIAL INFECTION
     Route: 065
  3. CASPOFUNGIN [Suspect]
     Active Substance: CASPOFUNGIN
     Indication: NOSOCOMIAL INFECTION
     Route: 065
  4. IMMUNOGLOBULIN (IMMUNOGLOBULIN NOS) [Suspect]
     Active Substance: IMMUNE GLOBULIN NOS
     Indication: COVID-19
     Dosage: 10 GRAM DAILY;
     Route: 065
     Dates: start: 202002
  5. CASPOFUNGIN [Suspect]
     Active Substance: CASPOFUNGIN
     Indication: BACTERIAL INFECTION
  6. METHYLPREDNISOLONE. [Suspect]
     Active Substance: METHYLPREDNISOLONE
     Indication: COVID-19
     Dosage: 40 MILLIGRAM DAILY;
     Route: 065
     Dates: start: 202002
  7. CYCLOSPORIN?A [Suspect]
     Active Substance: CYCLOSPORINE
     Indication: IMMUNOSUPPRESSANT DRUG THERAPY
     Route: 065
     Dates: start: 2019, end: 202003
  8. MEROPENEM. [Suspect]
     Active Substance: MEROPENEM
     Indication: BACTERIAL INFECTION
  9. LOPINAVIR/RITONAVIR [Suspect]
     Active Substance: LOPINAVIR\RITONAVIR
     Indication: COVID-19
     Dosage: 600 MILLIGRAM DAILY; THREE TIMES A DAY
     Route: 048
     Dates: start: 202002
  10. MOXIFLOXACIN. [Suspect]
     Active Substance: MOXIFLOXACIN
     Indication: NOSOCOMIAL INFECTION
     Route: 065
  11. LINEZOLID. [Suspect]
     Active Substance: LINEZOLID
     Indication: NOSOCOMIAL INFECTION
     Route: 065
  12. LINEZOLID. [Suspect]
     Active Substance: LINEZOLID
     Indication: BACTERIAL INFECTION

REACTIONS (6)
  - Drug ineffective [Unknown]
  - COVID-19 [Fatal]
  - Nosocomial infection [Fatal]
  - Bacterial infection [Fatal]
  - Off label use [Unknown]
  - Respiratory failure [Fatal]

NARRATIVE: CASE EVENT DATE: 2020
